FAERS Safety Report 10213691 (Version 1)
Quarter: 2014Q2

REPORT INFORMATION
  Report Type: Spontaneous
  Country: CA (occurrence: CA)
  Receive Date: 20140603
  Receipt Date: 20140603
  Transmission Date: 20141212
  Serious: Yes (Hospitalization)
  Sender: FDA-Public Use
  Company Number: CA-MYLANLABS-2014S1011941

PATIENT
  Age: 70 Year
  Sex: Male

DRUGS (8)
  1. DONEPEZIL [Suspect]
     Indication: DEMENTIA ALZHEIMER^S TYPE
     Route: 065
  2. PEPTO-BISMOL [Suspect]
     Indication: ABDOMINAL DISCOMFORT
     Route: 065
  3. CALCIUM CARBONATE [Concomitant]
     Route: 065
  4. ALENDRONIC ACID [Concomitant]
     Route: 065
  5. PRAVASTATIN [Concomitant]
     Route: 065
  6. EZETIMIBE [Concomitant]
     Route: 065
  7. OMEPRAZOLE [Concomitant]
     Route: 065
  8. PERINDOPRIL [Concomitant]
     Route: 065

REACTIONS (9)
  - Cognitive disorder [Unknown]
  - Gait disturbance [Unknown]
  - Fall [Unknown]
  - Subdural haematoma [Unknown]
  - Brain contusion [Unknown]
  - Neurotoxicity [Unknown]
  - Toxicity to various agents [Unknown]
  - Abdominal discomfort [Unknown]
  - Diarrhoea [Unknown]
